FAERS Safety Report 9982887 (Version 1)
Quarter: 2014Q1

REPORT INFORMATION
  Report Type: Report from Study
  Country: US (occurrence: US)
  Receive Date: 20140307
  Receipt Date: 20140307
  Transmission Date: 20141002
  Serious: No
  Sender: FDA-Public Use
  Company Number: US-ABBVIE-13P-163-1181238-00

PATIENT
  Age: 44 Year
  Sex: Male
  Weight: 111.23 kg

DRUGS (2)
  1. HUMIRA [Suspect]
     Indication: AUTOIMMUNE DISORDER
     Dates: end: 201311
  2. HUMIRA [Suspect]
     Indication: ARTHRITIS

REACTIONS (3)
  - Pain [Not Recovered/Not Resolved]
  - Upper respiratory tract infection [Recovered/Resolved]
  - Influenza [Recovered/Resolved]
